FAERS Safety Report 17750613 (Version 1)
Quarter: 2020Q2

REPORT INFORMATION
  Report Type: Report from Study
  Country: BR (occurrence: BR)
  Receive Date: 20200506
  Receipt Date: 20200506
  Transmission Date: 20200714
  Serious: Yes (Other)
  Sender: FDA-Public Use
  Company Number: NVSC2020BR121755

PATIENT
  Sex: Male

DRUGS (1)
  1. DIOVAN HCT [Suspect]
     Active Substance: HYDROCHLOROTHIAZIDE\VALSARTAN
     Indication: PRODUCT USED FOR UNKNOWN INDICATION
     Dosage: 1 DF (HYDROCHLOROTHIZIDE 12.5MG, VALSARTAN 80 MG)
     Route: 065

REACTIONS (4)
  - Parkinson^s disease [Recovering/Resolving]
  - Visual impairment [Not Recovered/Not Resolved]
  - Cataract [Unknown]
  - Movement disorder [Unknown]
